FAERS Safety Report 23649414 (Version 2)
Quarter: 2024Q1

REPORT INFORMATION
  Report Type: Spontaneous
  Country: AR (occurrence: AR)
  Receive Date: 20240319
  Receipt Date: 20240329
  Transmission Date: 20240410
  Serious: Yes (Other)
  Sender: FDA-Public Use
  Company Number: AR-002147023-NVSC2024AR052428

PATIENT
  Sex: Male

DRUGS (5)
  1. SANDOSTATIN LAR DEPOT [Suspect]
     Active Substance: OCTREOTIDE ACETATE
     Indication: Gastrointestinal haemorrhage
     Dosage: 30 MG, QMO
     Route: 030
     Dates: start: 20230928
  2. SANDOSTATIN LAR DEPOT [Suspect]
     Active Substance: OCTREOTIDE ACETATE
     Dosage: 1 OF 30MG, EVERY 30 DAYS
     Route: 030
     Dates: start: 20231214
  3. SANDOSTATIN LAR DEPOT [Suspect]
     Active Substance: OCTREOTIDE ACETATE
     Dosage: 1 OF 30MG, EVERY 30 DAYS
     Route: 030
     Dates: start: 20240114
  4. SANDOSTATIN LAR DEPOT [Suspect]
     Active Substance: OCTREOTIDE ACETATE
     Dosage: 1 OF 30MG, EVERY 30 DAYS
     Route: 030
     Dates: start: 20240304
  5. CLOPIDOGREL [Concomitant]
     Active Substance: CLOPIDOGREL BISULFATE
     Indication: Product used for unknown indication
     Dosage: UNK
     Route: 065

REACTIONS (18)
  - Arrhythmia [Unknown]
  - Deafness [Unknown]
  - Diarrhoea [Unknown]
  - Eructation [Unknown]
  - Flatulence [Unknown]
  - Abdominal distension [Unknown]
  - Abdominal pain [Unknown]
  - Headache [Unknown]
  - Dizziness [Unknown]
  - Alopecia [Unknown]
  - Faeces discoloured [Unknown]
  - Mental disorder [Unknown]
  - Abdominal pain upper [Unknown]
  - Nightmare [Unknown]
  - Gait disturbance [Unknown]
  - Constipation [Unknown]
  - Drug ineffective [Unknown]
  - Product storage error [Unknown]
